FAERS Safety Report 13509867 (Version 1)
Quarter: 2017Q2

REPORT INFORMATION
  Report Type: Spontaneous
  Country: US (occurrence: US)
  Receive Date: 20170503
  Receipt Date: 20170503
  Transmission Date: 20170830
  Serious: No
  Sender: FDA-Public Use
  Company Number: US-SA-2017SA048492

PATIENT
  Sex: Male

DRUGS (3)
  1. ALIROCUMAB PREFILLED PEN [Concomitant]
     Active Substance: ALIROCUMAB
  2. REPATHA [Concomitant]
     Active Substance: EVOLOCUMAB
     Dates: end: 2017
  3. PRALUENT [Suspect]
     Active Substance: ALIROCUMAB
     Route: 065

REACTIONS (3)
  - Secretion discharge [Unknown]
  - Urticaria [Unknown]
  - Skin disorder [Unknown]
